FAERS Safety Report 7041033-9 (Version None)
Quarter: 2010Q4

REPORT INFORMATION
  Report Type: 
  Country: None (occurrence: None)
  Receive Date: 20101013
  Receipt Date: 20101001
  Transmission Date: 20110411
  Serious: Yes (Other)
  Sender: FDA-Public Use
  Company Number: BR-JNJFOC-20101001092

PATIENT
  Age: 63 Year
  Sex: Male

DRUGS (3)
  1. REMICADE [Suspect]
     Indication: RHEUMATOID ARTHRITIS
     Route: 042
  2. METHOTREXATE [Concomitant]
     Indication: RHEUMATOID ARTHRITIS
  3. FOLIC ACID [Concomitant]
     Indication: RHEUMATOID ARTHRITIS

REACTIONS (5)
  - DECREASED IMMUNE RESPONSIVENESS [None]
  - EAR INFECTION [None]
  - HERPES ZOSTER [None]
  - PHARYNGITIS [None]
  - VIITH NERVE PARALYSIS [None]
